FAERS Safety Report 24753774 (Version 1)
Quarter: 2024Q4

REPORT INFORMATION
  Report Type: Spontaneous
  Country: US (occurrence: US)
  Receive Date: 20241219
  Receipt Date: 20241219
  Transmission Date: 20250115
  Serious: No
  Sender: PFIZER
  Company Number: US-PFIZER INC-202400323821

PATIENT
  Age: 44 Year
  Sex: Male
  Weight: 129.27 kg

DRUGS (1)
  1. GENOTROPIN [Suspect]
     Active Substance: SOMATROPIN
     Indication: Growth hormone deficiency
     Dosage: 0.3MG SUBCUTANEOUSLY ONCE DAILY
     Route: 058
     Dates: start: 20221018

REACTIONS (4)
  - Drug dose omission by device [Not Recovered/Not Resolved]
  - Device information output issue [Unknown]
  - Device delivery system issue [Unknown]
  - Device use issue [Unknown]

NARRATIVE: CASE EVENT DATE: 20241201
